FAERS Safety Report 17198885 (Version 2)
Quarter: 2020Q1

REPORT INFORMATION
  Report Type: Report from Study
  Country: EG (occurrence: EG)
  Receive Date: 20191225
  Receipt Date: 20200106
  Transmission Date: 20200409
  Serious: Yes (Death, Hospitalization)
  Sender: FDA-Public Use
  Company Number: NVSC2019EG076885

PATIENT
  Age: 57 Year
  Sex: Female

DRUGS (3)
  1. GLIVEC [Suspect]
     Active Substance: IMATINIB MESYLATE
     Dosage: 400 MG, QD
     Route: 048
     Dates: end: 201912
  2. GLIVEC [Suspect]
     Active Substance: IMATINIB MESYLATE
     Dosage: 300 MG, QD
     Route: 048
  3. GLIVEC [Suspect]
     Active Substance: IMATINIB MESYLATE
     Indication: CHRONIC MYELOID LEUKAEMIA TRANSFORMATION
     Dosage: 400 MG, QD
     Route: 048

REACTIONS (8)
  - Nasopharyngitis [Fatal]
  - Full blood count decreased [Fatal]
  - Bone marrow failure [Fatal]
  - Dyspnoea [Fatal]
  - Acute lymphocytic leukaemia [Fatal]
  - General physical health deterioration [Unknown]
  - Cough [Fatal]
  - Decreased immune responsiveness [Fatal]
